FAERS Safety Report 13070759 (Version 1)
Quarter: 2016Q4

REPORT INFORMATION
  Report Type: Spontaneous
  Country: GB (occurrence: GB)
  Receive Date: 20161229
  Receipt Date: 20161229
  Transmission Date: 20170207
  Serious: Yes (Other)
  Sender: FDA-Public Use
  Company Number: GB-ACCORD-046892

PATIENT
  Age: 87 Year
  Sex: Female

DRUGS (1)
  1. AMITRIPTYLINE ACCORD [Suspect]
     Active Substance: AMITRIPTYLINE
     Indication: BACK PAIN
     Dosage: FROM SEVERAL MONTHS

REACTIONS (3)
  - Withdrawal syndrome [Not Recovered/Not Resolved]
  - Depressive symptom [Not Recovered/Not Resolved]
  - Off label use [Unknown]
